FAERS Safety Report 18095412 (Version 1)
Quarter: 2020Q3

REPORT INFORMATION
  Report Type: Other
  Country: US (occurrence: US)
  Receive Date: 20200731
  Receipt Date: 20200731
  Transmission Date: 20201103
  Serious: Yes (Other)
  Sender: FDA-Public Use
  Company Number: US-ROCHE-2650541

PATIENT
  Age: 52 Year
  Sex: Male

DRUGS (1)
  1. ACTILYSE [Suspect]
     Active Substance: ALTEPLASE
     Indication: CAROTID ARTERY OCCLUSION
     Route: 042

REACTIONS (5)
  - Cerebral artery occlusion [Unknown]
  - Cerebral infarction [Unknown]
  - Cerebral haemorrhage [Unknown]
  - Carotid artery thrombosis [Unknown]
  - COVID-19 [Unknown]
